FAERS Safety Report 5886456-6 (Version None)
Quarter: 2008Q3

REPORT INFORMATION
  Report Type: 
  Country: None (occurrence: None)
  Receive Date: 20080917
  Receipt Date: 20080912
  Transmission Date: 20090109
  Serious: Yes (Hospitalization)
  Sender: FDA-Public Use
  Company Number: HQWYE984104MAY07

PATIENT
  Sex: Male

DRUGS (11)
  1. SIROLIMUS [Suspect]
     Indication: PROPHYLAXIS AGAINST TRANSPLANT REJECTION
     Route: 048
     Dates: start: 20070410, end: 20070429
  2. NORVASC [Suspect]
     Dosage: UNSPECIFIED
     Dates: start: 20070403
  3. NEURONTIN [Suspect]
     Dosage: UNSPECIFIED
     Dates: start: 20070403
  4. MYCOPHENOLATE MOFETIL [Concomitant]
     Indication: PROPHYLAXIS AGAINST TRANSPLANT REJECTION
     Route: 048
     Dates: start: 20070123
  5. ASPIRIN [Concomitant]
     Dosage: UNSPECIFIED
     Dates: start: 20070206
  6. PRILOSEC [Concomitant]
     Dosage: UNSPECIFIED
     Dates: start: 20070403
  7. FLUCONAZOLE [Concomitant]
     Dosage: UNSPECIFIED
     Dates: start: 20070123
  8. ACYCLOVIR [Concomitant]
     Dosage: UNSPECIFIED
     Dates: start: 20070123
  9. FLORINEF [Concomitant]
     Dosage: UNSPECIFIED
     Dates: start: 20070206
  10. SEPTRA DS [Concomitant]
     Dosage: UNSPECIFIED
     Dates: start: 20070123
  11. TACROLIMUS [Concomitant]
     Indication: PROPHYLAXIS AGAINST TRANSPLANT REJECTION
     Dosage: UNSPECIFIED
     Route: 065
     Dates: end: 20070410

REACTIONS (2)
  - BACK PAIN [None]
  - NECK PAIN [None]
